FAERS Safety Report 5214038-8 (Version None)
Quarter: 2007Q1

REPORT INFORMATION
  Report Type: 
  Country: None (occurrence: None)
  Receive Date: 20070122
  Receipt Date: 20070116
  Transmission Date: 20070707
  Serious: Yes (Hospitalization)
  Sender: FDA-Public Use
  Company Number: US-ELI_LILLY_AND_COMPANY-US200609003727

PATIENT
  Age: 39 Year
  Sex: Female
  Weight: 67.12 kg

DRUGS (6)
  1. ZYPREXA [Suspect]
     Indication: DEPRESSION
     Dosage: 2.5 MG, UNK
     Dates: start: 19960101, end: 20050101
  2. QUETIAPINE FUMARATE [Concomitant]
     Dates: start: 20040101
  3. RISPERIDONE [Concomitant]
     Dates: start: 19940101, end: 19960101
  4. CITALOPRAM HYDROBROMIDE [Concomitant]
     Dates: start: 19940101, end: 19980101
  5. PAROXETINE HCL [Concomitant]
     Dates: start: 19950101
  6. VENLAFAXINE HCL [Concomitant]
     Dates: start: 19950101

REACTIONS (6)
  - BLOOD CHOLESTEROL ABNORMAL [None]
  - CARDIAC DISORDER [None]
  - DIABETES MELLITUS [None]
  - HYPERTENSION [None]
  - LOSS OF CONSCIOUSNESS [None]
  - METABOLIC DISORDER [None]
